FAERS Safety Report 9472896 (Version 1)
Quarter: 2013Q3

REPORT INFORMATION
  Report Type: Spontaneous
  Country: US (occurrence: None)
  Receive Date: 20130820
  Receipt Date: 20130820
  Transmission Date: 20140515
  Serious: Yes (Death)
  Sender: FDA-Public Use
  Company Number: 2013P1017329

PATIENT
  Sex: 0

DRUGS (2)
  1. KETOROLAC TROMETHAMINE [Suspect]
     Indication: SICKLE CELL ANAEMIA WITH CRISIS
     Route: 042
  2. HYDROMORPHONE [Concomitant]

REACTIONS (3)
  - Upper gastrointestinal haemorrhage [None]
  - Renal failure acute [None]
  - Pulseless electrical activity [None]
